FAERS Safety Report 8234898-6 (Version None)
Quarter: 2012Q1

REPORT INFORMATION
  Report Type: 
  Country: None (occurrence: None)
  Receive Date: 20120326
  Receipt Date: 20120319
  Transmission Date: 20120608
  Serious: Yes (Other)
  Sender: FDA-Public Use
  Company Number: CA-PFIZER INC-2012071267

PATIENT
  Age: 39 Year
  Sex: Female

DRUGS (1)
  1. XALATAN [Suspect]
     Indication: GLAUCOMA
     Dosage: 1 GTT, 1X/DAY IN LEFT EYE
     Route: 047
     Dates: start: 20110101

REACTIONS (2)
  - VISUAL ACUITY REDUCED [None]
  - PROSTHESIS USER [None]
